FAERS Safety Report 9772544 (Version 2)
Quarter: 2014Q1

REPORT INFORMATION
  Report Type: Spontaneous
  Country: US (occurrence: US)
  Receive Date: 20131219
  Receipt Date: 20140121
  Transmission Date: 20141002
  Serious: Yes (Hospitalization)
  Sender: FDA-Public Use
  Company Number: US-B.I. PHARMACEUTICALS,INC./RIDGEFIELD-2013-BI-42431BP

PATIENT
  Age: 68 Year
  Sex: Female
  Weight: 124.74 kg

DRUGS (20)
  1. PRADAXA [Suspect]
     Indication: ATRIAL FIBRILLATION
     Dosage: 300 MG
     Dates: start: 20110704, end: 20110718
  2. MULTAQ [Concomitant]
     Dosage: 800 MG
     Route: 048
  3. VERAPAMIL [Concomitant]
     Dosage: 240 MG
     Route: 048
  4. DIGOXIN [Concomitant]
     Dosage: 0.125 MG
     Route: 048
     Dates: start: 1998
  5. METOPROLOL [Concomitant]
     Dosage: 100 MG
     Route: 048
  6. PANTOPRAZOLE [Concomitant]
     Dosage: 40 MG
     Route: 048
  7. LYRICA [Concomitant]
     Dosage: 25 MG
     Route: 048
  8. MULTIVITAMIN WITH MINERALS [Concomitant]
  9. PROMETHAZINE [Concomitant]
     Indication: NAUSEA
  10. PROMETHAZINE [Concomitant]
     Indication: VOMITING
  11. BENADRYL [Concomitant]
     Indication: MULTIPLE ALLERGIES
     Dates: start: 1994
  12. XANAX [Concomitant]
     Indication: ANXIETY
     Dates: start: 1994
  13. AMBIEN [Concomitant]
     Indication: SLEEP DISORDER
  14. KCL [Concomitant]
     Dosage: 10 MEQ
     Route: 048
  15. PATANOL OPHTHALMIC SOLUTION [Concomitant]
  16. FLEXERIL [Concomitant]
     Indication: MUSCLE SPASMS
  17. NITROGLYCERIN [Concomitant]
     Indication: CHEST PAIN
  18. HYDROCODONE [Concomitant]
     Indication: PAIN
  19. SIMVASTATIN [Concomitant]
     Dosage: 40 MG
     Route: 048
     Dates: start: 1994, end: 2012
  20. NORTRIPTYLINE [Concomitant]
     Dosage: 50 MG
     Route: 048

REACTIONS (2)
  - Gastrointestinal haemorrhage [Unknown]
  - Haemorrhagic anaemia [Unknown]
